FAERS Safety Report 7260981-8 (Version None)
Quarter: 2011Q1

REPORT INFORMATION
  Report Type: 
  Country: None (occurrence: None)
  Receive Date: 20110130
  Receipt Date: 20101112
  Transmission Date: 20110831
  Serious: No
  Sender: FDA-Public Use
  Company Number: US-ABBOTT-10P-163-0685142-00

PATIENT
  Sex: Female
  Weight: 56.75 kg

DRUGS (21)
  1. ROBITUSSIN [Concomitant]
     Indication: UPPER RESPIRATORY TRACT INFECTION
     Dosage: ONE TOTAL
     Route: 048
     Dates: start: 20100113, end: 20100117
  2. LACTULOSE [Concomitant]
     Indication: LAXATIVE SUPPORTIVE CARE
     Route: 048
     Dates: start: 20100811, end: 20100812
  3. LACTULOSE [Concomitant]
     Route: 048
     Dates: start: 20100826, end: 20100830
  4. LACTULOSE [Concomitant]
     Route: 048
     Dates: start: 20100902, end: 20101029
  5. CAFFEINE [Concomitant]
     Indication: PRODUCT USED FOR UNKNOWN INDICATION
     Route: 048
     Dates: start: 20100401, end: 20100601
  6. AUGMENTIN '125' [Concomitant]
     Indication: UPPER RESPIRATORY TRACT INFECTION
     Route: 048
     Dates: start: 20100114, end: 20100124
  7. SUDAFED 12 HOUR [Concomitant]
     Indication: HYPERSENSITIVITY
     Route: 048
     Dates: start: 20100531, end: 20100531
  8. ROBITUSSIN [Concomitant]
     Route: 048
     Dates: start: 20101001, end: 20101029
  9. ASPIRIN [Concomitant]
     Indication: SWELLING
     Route: 048
     Dates: start: 20100811, end: 20101029
  10. CAFFEINE [Concomitant]
     Route: 048
     Dates: start: 20100108, end: 20100223
  11. PRENATAL VITAMINS WITH IRON [Concomitant]
     Indication: PRODUCT USED FOR UNKNOWN INDICATION
     Route: 048
     Dates: start: 20100223, end: 20100707
  12. COLACE [Concomitant]
     Indication: LAXATIVE SUPPORTIVE CARE
     Route: 048
     Dates: start: 20100107, end: 20100815
  13. ANESTHESIA, ANY NOS [Concomitant]
     Indication: ENDODONTIC PROCEDURE
     Dates: start: 20101008, end: 20101015
  14. FLUVIRIN VACCINE [Concomitant]
     Indication: ANTIVIRAL PROPHYLAXIS
     Route: 050
     Dates: start: 20101001, end: 20101029
  15. CAFFEINE [Concomitant]
     Route: 048
     Dates: start: 20100902, end: 20101029
  16. PRENATAL VITAMINS [Concomitant]
     Indication: PRODUCT USED FOR UNKNOWN INDICATION
     Route: 048
     Dates: start: 20100108, end: 20100222
  17. SUDAFED 12 HOUR [Concomitant]
     Indication: SINUS DISORDER
  18. HUMIRA [Suspect]
     Indication: CROHN'S DISEASE
     Route: 050
     Dates: start: 20100108, end: 20101029
  19. PRENATAL VITAMINS [Concomitant]
     Route: 048
     Dates: start: 20100708, end: 20101029
  20. DHA [Concomitant]
     Indication: PRODUCT USED FOR UNKNOWN INDICATION
     Route: 048
     Dates: start: 20100223, end: 20101029
  21. TUMS [Concomitant]
     Indication: DYSPEPSIA
     Route: 048
     Dates: start: 20100701, end: 20101029

REACTIONS (5)
  - HYPERSENSITIVITY [None]
  - ENDODONTIC PROCEDURE [None]
  - SWELLING [None]
  - DYSPEPSIA [None]
  - UPPER RESPIRATORY TRACT INFECTION [None]
